FAERS Safety Report 7073175-6 (Version None)
Quarter: 2010Q4

REPORT INFORMATION
  Report Type: 
  Country: None (occurrence: None)
  Receive Date: 20101029
  Receipt Date: 20101019
  Transmission Date: 20110411
  Serious: Yes (Hospitalization)
  Sender: FDA-Public Use
  Company Number: JP-AMGEN-KDC433621

PATIENT

DRUGS (37)
  1. PANITUMUMAB [Suspect]
     Indication: COLORECTAL CANCER
     Dosage: 6 MG/KG, Q2WK
     Route: 041
     Dates: start: 20100804, end: 20100804
  2. PANITUMUMAB [Suspect]
     Dosage: 4.8 MG/KG, Q2WK
     Route: 041
     Dates: start: 20100824, end: 20100913
  3. IRINOTECAN HYDROCHLORIDE [Suspect]
     Indication: COLORECTAL CANCER
     Dosage: 200 MG, Q2WK
     Route: 041
     Dates: start: 20100804
  4. IRINOTECAN HYDROCHLORIDE [Suspect]
     Dosage: UNK UNK, UNK
     Dates: start: 20100301, end: 20100601
  5. TAKEPRON OD TABLETS 15 [Concomitant]
     Dosage: UNK UNK, UNK
     Route: 048
  6. TAKEPRON OD TABLETS 15 [Concomitant]
     Route: 048
  7. HICEE GRANULES 25% [Concomitant]
     Dosage: 3 G, QD
     Route: 048
  8. FLUOROURACIL [Concomitant]
     Indication: COLORECTAL CANCER
     Dosage: 640 MG, Q2WK
     Route: 040
     Dates: start: 20100804
  9. FLUOROURACIL [Concomitant]
     Dosage: 3750 MG, Q2WK
     Route: 041
     Dates: start: 20100804
  10. FLUOROURACIL [Concomitant]
     Dosage: UNK UNK, UNK
     Dates: start: 20091001, end: 20091101
  11. CALCIUM LEVOFOLINATE [Concomitant]
     Indication: COLORECTAL CANCER
     Dosage: 320 MG, Q2WK
     Route: 041
     Dates: start: 20100804
  12. CALCIUM LEVOFOLINATE [Concomitant]
     Dosage: UNK UNK, UNK
     Dates: start: 20091001, end: 20091101
  13. TSUMURA GOSHAJINKIGAN [Concomitant]
     Dosage: UNK UNK, UNK
     Route: 048
  14. TSUMURA GOSHAJINKIGAN [Concomitant]
     Route: 048
  15. TSUMURA HOCHU EKKI-TO [Concomitant]
     Dosage: UNK UNK, UNK
     Route: 048
  16. TSUMURA HOCHU EKKI-TO [Concomitant]
     Route: 048
  17. TSUMURA SHAKUYAKUKANZOUTOU [Concomitant]
     Dosage: UNK UNK, UNK
     Route: 048
  18. TSUMURA SHAKUYAKUKANZOUTOU [Concomitant]
     Route: 048
  19. LIVACT [Concomitant]
     Dosage: 3 UNK, QD
     Route: 048
  20. BAKTAR [Concomitant]
     Dosage: .5 G, QD
     Route: 048
  21. PREDNISOLONE [Concomitant]
     Dosage: 5 MG, QD
     Route: 048
  22. FUROSEMIDE [Concomitant]
     Dosage: 20 MG, QD
     Route: 048
  23. ALDACTONE [Concomitant]
     Dosage: 25 MG, QD
     Route: 048
  24. URSODIOL [Concomitant]
     Dosage: 3 UNK, QD
     Route: 048
  25. MAGNESIUM OXIDE [Concomitant]
     Dosage: 1.5 G, QD
     Route: 048
  26. JUSO [Concomitant]
     Dosage: 1.8 G, QD
     Route: 048
  27. TSUMURA HANGESHASHINTO [Concomitant]
     Dosage: UNK UNK, QD
     Route: 048
  28. TSUMURA HANGESHASHINTO [Concomitant]
     Route: 048
  29. NAUZELIN [Concomitant]
     Dosage: UNK UNK, QD
     Route: 065
  30. NAUZELIN [Concomitant]
     Route: 065
  31. ANTIHISTAMINES [Concomitant]
     Indication: PROPHYLAXIS
     Dosage: UNK UNK, UNK
     Route: 065
  32. ANTIHISTAMINES [Concomitant]
     Route: 065
  33. CORTICOSTEROID NOS [Concomitant]
     Indication: PROPHYLAXIS
     Dosage: UNK UNK, UNK
     Route: 065
  34. PREDNISOLONE [Concomitant]
     Route: 048
  35. LASIX [Concomitant]
     Route: 048
  36. URSO 250 [Concomitant]
     Route: 048
  37. CORTICOSTEROIDS [Concomitant]
     Indication: PROPHYLAXIS
     Route: 065

REACTIONS (3)
  - LIP ULCERATION [None]
  - MOUTH ULCERATION [None]
  - WHITE BLOOD CELL COUNT DECREASED [None]
